FAERS Safety Report 5156799-2 (Version None)
Quarter: 2006Q4

REPORT INFORMATION
  Report Type: 
  Country: None (occurrence: None)
  Receive Date: 20061115
  Receipt Date: 20061101
  Transmission Date: 20070319
  Serious: Yes (Disabling)
  Sender: FDA-Public Use
  Company Number: 15130

PATIENT
  Age: 62 Year
  Sex: Male

DRUGS (2)
  1. CARBOPLATIN [Suspect]
     Indication: NON-SMALL CELL LUNG CANCER STAGE I
     Dosage: 150 MG Q3W IV
     Route: 042
     Dates: start: 20060809, end: 20061004
  2. PARACET [Concomitant]

REACTIONS (1)
  - VISUAL ACUITY REDUCED [None]
